FAERS Safety Report 17350296 (Version 1)
Quarter: 2020Q1

REPORT INFORMATION
  Report Type: Spontaneous
  Country: FR (occurrence: FR)
  Receive Date: 20200130
  Receipt Date: 20200130
  Transmission Date: 20200409
  Serious: Yes (Hospitalization, Other)
  Sender: FDA-Public Use
  Company Number: FR-AUROBINDO-AUR-APL-2020-004934

PATIENT
  Age: 41 Year
  Sex: Male
  Weight: 67 kg

DRUGS (3)
  1. FLUOROURACILE [Suspect]
     Active Substance: FLUOROURACIL
     Indication: RECTAL ADENOCARCINOMA
     Dosage: 4400 MILLIGRAM (FIRST TIME)
     Route: 042
     Dates: start: 20191218, end: 20191220
  2. LEVOFOLINATE [Suspect]
     Active Substance: LEVOLEUCOVORIN CALCIUM
     Indication: RECTAL ADENOCARCINOMA
     Dosage: 370 MILLIGRAM
     Route: 042
     Dates: start: 20191218
  3. OXALIPLATIN. [Suspect]
     Active Substance: OXALIPLATIN
     Indication: RECTAL ADENOCARCINOMA
     Dosage: 125 MILLIGRAM (FIRST CURE)
     Route: 042
     Dates: start: 20191218

REACTIONS (1)
  - Focal dyscognitive seizures [Recovered/Resolved]

NARRATIVE: CASE EVENT DATE: 20191220
